FAERS Safety Report 11272051 (Version 2)
Quarter: 2015Q3

REPORT INFORMATION
  Report Type: Report from Study
  Country: US (occurrence: US)
  Receive Date: 20150715
  Receipt Date: 20150812
  Transmission Date: 20151125
  Serious: No
  Sender: FDA-Public Use
  Company Number: US-AMGEN-USASL2015068561

PATIENT
  Age: 58 Year
  Sex: Female

DRUGS (2)
  1. ENBREL [Suspect]
     Active Substance: ETANERCEPT
     Indication: RHEUMATOID ARTHRITIS
     Dosage: 50 MG, QWK
     Route: 065
     Dates: start: 20150629, end: 201507
  2. HUMIRA [Suspect]
     Active Substance: ADALIMUMAB
     Indication: PRODUCT USED FOR UNKNOWN INDICATION
     Dosage: UNK
     Route: 065
     Dates: start: 201507

REACTIONS (10)
  - Arthralgia [Not Recovered/Not Resolved]
  - Arthritis [Unknown]
  - Feeling abnormal [Unknown]
  - Inflammation [Unknown]
  - Vomiting [Unknown]
  - Fatigue [Unknown]
  - Joint stiffness [Not Recovered/Not Resolved]
  - Headache [Unknown]
  - No therapeutic response [Not Recovered/Not Resolved]
  - Abdominal discomfort [Unknown]

NARRATIVE: CASE EVENT DATE: 2015
